FAERS Safety Report 15286973 (Version 2)
Quarter: 2018Q3

REPORT INFORMATION
  Report Type: Report from Study
  Country: US (occurrence: US)
  Receive Date: 20180816
  Receipt Date: 20180821
  Transmission Date: 20181010
  Serious: No
  Sender: FDA-Public Use
  Company Number: PHEH2018US033073

PATIENT
  Sex: Male

DRUGS (1)
  1. ENTRESTO [Suspect]
     Active Substance: SACUBITRIL\VALSARTAN
     Indication: VIRAL CARDIOMYOPATHY
     Dosage: UNK
     Route: 065

REACTIONS (4)
  - Blood cholesterol decreased [Unknown]
  - Hypotension [Unknown]
  - Pruritus [Unknown]
  - Product use in unapproved indication [Unknown]
